FAERS Safety Report 8945162 (Version 1)
Quarter: 2012Q4

REPORT INFORMATION
  Report Type: 
  Country: US (occurrence: US)
  Receive Date: 20121204
  Receipt Date: 20121204
  Transmission Date: 20130627
  Serious: No
  Sender: FDA-Public Use
  Company Number: US-AMGEN-USASP2012066942

PATIENT
  Age: 55 Year
  Sex: Female

DRUGS (2)
  1. ENBREL [Suspect]
     Indication: PSORIATIC ARTHROPATHY
     Dosage: 50 mg, qwk
     Dates: start: 2003, end: 20121007
  2. METHOTREXATE [Concomitant]
     Dosage: 10 mg, qwk

REACTIONS (7)
  - Blood count abnormal [Not Recovered/Not Resolved]
  - Gastrointestinal ulcer [Unknown]
  - Irritable bowel syndrome [Not Recovered/Not Resolved]
  - Weight decreased [Unknown]
  - Arthropathy [Not Recovered/Not Resolved]
  - Fatigue [Not Recovered/Not Resolved]
  - Anaemia [Not Recovered/Not Resolved]
